FAERS Safety Report 18170913 (Version 1)
Quarter: 2020Q3

REPORT INFORMATION
  Report Type: Spontaneous
  Country: FR (occurrence: FR)
  Receive Date: 20200819
  Receipt Date: 20200819
  Transmission Date: 20201103
  Serious: Yes (Other)
  Sender: FDA-Public Use
  Company Number: FR-JNJFOC-20200819270

PATIENT
  Sex: Female

DRUGS (3)
  1. XEPLION [Suspect]
     Active Substance: PALIPERIDONE PALMITATE
     Indication: NERVOUSNESS
     Route: 030
     Dates: start: 2019
  2. XEPLION [Suspect]
     Active Substance: PALIPERIDONE PALMITATE
  3. XEPLION [Suspect]
     Active Substance: PALIPERIDONE PALMITATE

REACTIONS (11)
  - Nervousness [Unknown]
  - Dizziness [Unknown]
  - Headache [Unknown]
  - Muscle spasms [Unknown]
  - Nasal disorder [Unknown]
  - Off label use [Unknown]
  - Angina pectoris [Unknown]
  - Hyperprolactinaemia [Unknown]
  - Nausea [Unknown]
  - Feeling abnormal [Unknown]
  - Product use in unapproved indication [Unknown]
